FAERS Safety Report 15256468 (Version 24)
Quarter: 2021Q4

REPORT INFORMATION
  Report Type: Report from Study
  Country: IT (occurrence: None)
  Receive Date: 20180808
  Receipt Date: 20211129
  Transmission Date: 20220303
  Serious: Yes (Death, Life-Threatening, Hospitalization)
  Sender: FDA-Public Use
  Company Number: IT-ROCHE-2165560

PATIENT
  Age: 53 Year
  Sex: Female
  Weight: 62 kg

DRUGS (13)
  1. ATEZOLIZUMAB [Suspect]
     Active Substance: ATEZOLIZUMAB
     Indication: Triple negative breast cancer
     Route: 041
     Dates: start: 20180704
  2. CARBOPLATIN [Suspect]
     Active Substance: CARBOPLATIN
     Indication: Triple negative breast cancer
     Dosage: ON 25/JUL/2018, THE PATIENT RECEIVED THE MOST RECENT DOSE OF CARBOPLATIN (270 MG) PRIOR TO ONSET OF
     Route: 042
     Dates: start: 20180704
  3. GEMCITABINE [Suspect]
     Active Substance: GEMCITABINE
     Indication: Triple negative breast cancer
     Dosage: ON 25/JUL/2018, THE PATIENT RECEIVED THE MOST RECENT DOSE OF GEMCITABINE (1000 MG/M^2) PRIOR TO ONSE
     Route: 042
     Dates: start: 20180704
  4. GRANISETRON [Concomitant]
     Active Substance: GRANISETRON
     Indication: Premedication
     Dates: start: 20180704
  5. RANITIDINE [Concomitant]
     Active Substance: RANITIDINE
     Indication: Premedication
     Dates: start: 20180704
  6. DEXAMETHASONE [Concomitant]
     Active Substance: DEXAMETHASONE
     Indication: Premedication
     Dates: start: 20180704, end: 20180704
  7. DEXAMETHASONE [Concomitant]
     Active Substance: DEXAMETHASONE
     Dates: start: 20180725, end: 20180725
  8. ZOFRAN [Concomitant]
     Active Substance: ONDANSETRON HYDROCHLORIDE
     Indication: Acute kidney injury
     Dates: start: 20180708, end: 20180708
  9. ACETAMINOPHEN [Concomitant]
     Active Substance: ACETAMINOPHEN
     Indication: Acute kidney injury
     Route: 042
     Dates: start: 20180724
  10. FOLIC ACID [Concomitant]
     Active Substance: FOLIC ACID
     Indication: Prophylaxis
     Dates: end: 20180802
  11. LANSOPRAZOLE [Concomitant]
     Active Substance: LANSOPRAZOLE
     Indication: Prophylaxis
  12. PREDNISONE [Concomitant]
     Active Substance: PREDNISONE
  13. CALCIUM CARBONATE;CALCIUM GLUCONATE [Concomitant]
     Dates: start: 20180720

REACTIONS (3)
  - Sepsis [Fatal]
  - Acute kidney injury [Not Recovered/Not Resolved]
  - Thrombocytopenia [Not Recovered/Not Resolved]

NARRATIVE: CASE EVENT DATE: 20180802
